FAERS Safety Report 17330999 (Version 2)
Quarter: 2020Q1

REPORT INFORMATION
  Report Type: Spontaneous
  Country: FR (occurrence: FR)
  Receive Date: 20200127
  Receipt Date: 20200218
  Transmission Date: 20200409
  Serious: Yes (Other)
  Sender: FDA-Public Use
  Company Number: FR-BAYER-2020-011567

PATIENT
  Age: 65 Year
  Sex: Male
  Weight: 121.95 kg

DRUGS (4)
  1. STIVARGA [Suspect]
     Active Substance: REGORAFENIB
     Dosage: DAILY DOSE 40 MG
     Dates: start: 201803, end: 201805
  2. STIVARGA [Suspect]
     Active Substance: REGORAFENIB
     Dosage: DAILY DOSE 40 MG
     Dates: start: 201807, end: 201808
  3. STIVARGA [Suspect]
     Active Substance: REGORAFENIB
     Dosage: DAILY DOSE 80 MG
     Dates: start: 201805, end: 201806
  4. STIVARGA [Suspect]
     Active Substance: REGORAFENIB
     Dosage: 1/DAY ALTERNATING WITH 2/DAY
     Dates: start: 201809, end: 201904

REACTIONS (6)
  - Hepatic encephalopathy [None]
  - Hepatic function abnormal [None]
  - Hepatic encephalopathy [None]
  - Off label use [None]
  - Hepatic encephalopathy [None]
  - Hepatic encephalopathy [None]

NARRATIVE: CASE EVENT DATE: 201805
